FAERS Safety Report 10882030 (Version 1)
Quarter: 2015Q1

REPORT INFORMATION
  Report Type: Spontaneous
  Country: US (occurrence: US)
  Receive Date: 20150303
  Receipt Date: 20150303
  Transmission Date: 20150721
  Serious: No
  Sender: FDA-Public Use
  Company Number: US-MALLINCKRODT-T201404566

PATIENT
  Age: 34 Year
  Sex: Female

DRUGS (1)
  1. SODIUM IODIDE (123 I) [Suspect]
     Active Substance: SODIUM IODIDE I-123
     Indication: PRODUCT USED FOR UNKNOWN INDICATION
     Dosage: 200 ?CI, UNK

REACTIONS (3)
  - Abdominal pain [Unknown]
  - Diarrhoea [Unknown]
  - Gastrointestinal pain [Unknown]
